FAERS Safety Report 8907227 (Version 1)
Quarter: 2012Q4

REPORT INFORMATION
  Report Type: 
  Country: US (occurrence: US)
  Receive Date: 20121114
  Receipt Date: 20121114
  Transmission Date: 20130627
  Serious: No
  Sender: FDA-Public Use
  Company Number: US-009507513-1211USA004888

PATIENT
  Sex: Female
  Weight: 140 kg

DRUGS (7)
  1. REMERON [Suspect]
     Dosage: UNK
  2. AMITRIPTYLINE HYDROCHLORIDE [Suspect]
     Indication: MUSCLE RELAXANT THERAPY
     Dosage: UNK
  3. PAXIL [Suspect]
  4. SPIRIVA [Concomitant]
     Indication: CHRONIC OBSTRUCTIVE PULMONARY DISEASE
     Dosage: 1 puff daily
  5. HEMP [Concomitant]
     Indication: PAIN
  6. [THERAPY UNSPECIFIED] [Concomitant]
     Indication: HYPOTONIA
  7. [THERAPY UNSPECIFIED] [Concomitant]
     Indication: HYPOTONIA

REACTIONS (1)
  - Drug intolerance [Unknown]
